FAERS Safety Report 4951687-6 (Version None)
Quarter: 2006Q1

REPORT INFORMATION
  Report Type: 
  Country: None (occurrence: None)
  Receive Date: 20060322
  Receipt Date: 20060322
  Transmission Date: 20060701
  Serious: Yes (Other)
  Sender: FDA-Public Use
  Company Number: None

PATIENT
  Age: 39 Year
  Sex: Male
  Weight: 140.1615 kg

DRUGS (4)
  1. QUETIAPINE FUMARATE [Suspect]
     Indication: SCHIZOAFFECTIVE DISORDER
     Dosage: 600 MG BID PO
     Route: 048
  2. DIPHENHYDRAMINE [Concomitant]
  3. HALOPERIDOL [Concomitant]
  4. BENZTROPINE MESYLATE [Concomitant]

REACTIONS (3)
  - DIABETES MELLITUS [None]
  - REFUSAL OF TREATMENT BY PATIENT [None]
  - WEIGHT DECREASED [None]
